FAERS Safety Report 6176793-2 (Version None)
Quarter: 2009Q2

REPORT INFORMATION
  Report Type: 
  Country: None (occurrence: None)
  Receive Date: 20090501
  Receipt Date: 20090430
  Transmission Date: 20091009
  Serious: No
  Sender: FDA-Public Use
  Company Number: US-B.I. PHARMACEUTICALS,INC./RIDGEFIELD-2009-BP-05403BP

PATIENT
  Age: 83 Year
  Sex: Female

DRUGS (6)
  1. CLONIDINE HCL [Suspect]
     Indication: HYPERTENSION
     Dosage: .2MG
     Route: 048
     Dates: start: 20090422
  2. CARVEDILL [Concomitant]
     Indication: BLOOD PRESSURE INCREASED
     Dosage: 12.5MG
  3. AMLODIPINE [Concomitant]
     Indication: BLOOD PRESSURE INCREASED
     Dosage: 10MG
  4. TRICHOR [Concomitant]
     Indication: BLOOD CHOLESTEROL INCREASED
  5. ASPIRIN [Concomitant]
     Indication: PROPHYLAXIS
  6. LEVOTHYROXINE SODIUM [Concomitant]
     Indication: THYROID DISORDER

REACTIONS (5)
  - DEPRESSION [None]
  - DIZZINESS [None]
  - IMPAIRED DRIVING ABILITY [None]
  - LETHARGY [None]
  - NAUSEA [None]
